FAERS Safety Report 22056247 (Version 3)
Quarter: 2023Q1

REPORT INFORMATION
  Report Type: Report from Study
  Country: ZA (occurrence: None)
  Receive Date: 20230302
  Receipt Date: 20230327
  Transmission Date: 20230417
  Serious: Yes (Hospitalization)
  Sender: FDA-Public Use
  Company Number: ZA-Merck Healthcare KGaA-9386648

PATIENT
  Age: 60 Year
  Sex: Female

DRUGS (1)
  1. REBIF [Suspect]
     Active Substance: INTERFERON BETA-1A
     Indication: Multiple sclerosis
     Dosage: PRE-FILLED PENS
     Dates: start: 20211029

REACTIONS (3)
  - Osteoarthritis [Recovering/Resolving]
  - Burning sensation [Unknown]
  - Neuralgia [Unknown]

NARRATIVE: CASE EVENT DATE: 20230227
